FAERS Safety Report 6530350-4 (Version None)
Quarter: 2010Q1

REPORT INFORMATION
  Report Type: 
  Country: None (occurrence: None)
  Receive Date: 20100107
  Receipt Date: 20091228
  Transmission Date: 20100710
  Serious: Yes (Other)
  Sender: FDA-Public Use
  Company Number: FR-BAXTER-2010BH000012

PATIENT
  Age: 65 Year
  Sex: Female

DRUGS (14)
  1. HOLOXAN BAXTER [Suspect]
     Indication: LEIOMYOSARCOMA RECURRENT
     Route: 042
     Dates: start: 20090710, end: 20090711
  2. EMEND [Suspect]
     Indication: LEIOMYOSARCOMA RECURRENT
     Route: 048
     Dates: start: 20090711, end: 20090711
  3. EMEND [Suspect]
     Route: 048
     Dates: start: 20090710, end: 20090710
  4. ADRIBLASTINE [Suspect]
     Indication: LEIOMYOSARCOMA RECURRENT
     Route: 042
     Dates: start: 20090711, end: 20090711
  5. ADRIBLASTINE [Suspect]
     Route: 042
     Dates: start: 20090819, end: 20090819
  6. DOLIPRANE [Concomitant]
     Indication: PAIN
     Route: 048
  7. ZOPHREN [Concomitant]
     Indication: PREMEDICATION
     Route: 042
     Dates: start: 20090710, end: 20090711
  8. METHYLPREDNISOLONE [Concomitant]
     Indication: PREMEDICATION
     Route: 042
     Dates: start: 20090710, end: 20090711
  9. UROMITEXAN [Concomitant]
     Indication: PREMEDICATION
     Route: 042
     Dates: start: 20090710, end: 20090711
  10. LASILIX [Concomitant]
     Indication: PREMEDICATION
     Route: 042
     Dates: start: 20090710, end: 20090711
  11. OSMOTAN G [Concomitant]
     Indication: PREMEDICATION
     Route: 042
     Dates: start: 20090710, end: 20090711
  12. EFFEXOR [Concomitant]
     Indication: DRUG USE FOR UNKNOWN INDICATION
     Route: 048
  13. LEXOMIL [Concomitant]
     Indication: DRUG USE FOR UNKNOWN INDICATION
     Route: 048
  14. INNOHEP                                 /NET/ [Concomitant]
     Indication: DRUG USE FOR UNKNOWN INDICATION
     Route: 058

REACTIONS (1)
  - CYTOLYTIC HEPATITIS [None]
